FAERS Safety Report 7380599-6 (Version None)
Quarter: 2011Q1

REPORT INFORMATION
  Report Type: 
  Country: None (occurrence: None)
  Receive Date: 20110329
  Receipt Date: 20110317
  Transmission Date: 20110831
  Serious: Yes (Hospitalization, Other)
  Sender: FDA-Public Use
  Company Number: US-ACTELION-A-US2011-44108

PATIENT

DRUGS (20)
  1. SYNTHROID [Concomitant]
  2. NEPHROCAPS [Concomitant]
  3. CATAPRES [Concomitant]
  4. CELEXA [Concomitant]
  5. DULCOLAX [Concomitant]
  6. PHOSLO [Concomitant]
  7. COLACE [Concomitant]
  8. CITALOPRAM HYDROBROMIDE [Concomitant]
  9. REVATIO [Concomitant]
  10. REGLAN [Concomitant]
  11. TRACLEER [Suspect]
     Dosage: 125 MG, BID
     Route: 048
     Dates: start: 20100611, end: 20101201
  12. CAPOTEN [Concomitant]
  13. CARDIZEM [Concomitant]
  14. AMBIEN [Concomitant]
  15. TESTOSTERONE [Concomitant]
  16. TRACLEER [Suspect]
     Indication: PULMONARY ARTERIAL HYPERTENSION
     Dosage: 62.5 MG, BID
     Route: 048
     Dates: start: 20101223, end: 20110203
  17. TRACLEER [Suspect]
     Dosage: 125 MG, BID
     Route: 048
     Dates: start: 20101201, end: 20101201
  18. TRACLEER [Suspect]
     Dosage: 62.5 MG, BID
     Route: 048
     Dates: start: 20100511, end: 20100610
  19. PROTONIX [Concomitant]
  20. OXYCODONE [Concomitant]

REACTIONS (7)
  - PNEUMONIA ASPIRATION [None]
  - DYSPNOEA [None]
  - ASPARTATE AMINOTRANSFERASE INCREASED [None]
  - LIVER FUNCTION TEST ABNORMAL [None]
  - ALANINE AMINOTRANSFERASE INCREASED [None]
  - BLOOD BILIRUBIN INCREASED [None]
  - BLOOD ALKALINE PHOSPHATASE INCREASED [None]
